FAERS Safety Report 12715570 (Version 1)
Quarter: 2016Q3

REPORT INFORMATION
  Report Type: Spontaneous
  Country: US (occurrence: US)
  Receive Date: 20160906
  Receipt Date: 20160906
  Transmission Date: 20161109
  Serious: Yes (Death, Other)
  Sender: FDA-Public Use
  Company Number: US-ACCORD-043612

PATIENT
  Age: 10 Year
  Sex: Male

DRUGS (4)
  1. CICLOSPORIN [Suspect]
     Active Substance: CYCLOSPORINE
     Indication: PROPHYLAXIS AGAINST GRAFT VERSUS HOST DISEASE
  2. MYCOPHENOLIC ACID. [Suspect]
     Active Substance: MYCOPHENOLIC ACID
     Indication: PROPHYLAXIS AGAINST GRAFT VERSUS HOST DISEASE
  3. TREOSULFAN [Concomitant]
     Active Substance: TREOSULFAN
  4. FLUDARABINE/FLUDARABINE PHOSPHATE [Concomitant]

REACTIONS (7)
  - Cough [Recovering/Resolving]
  - Pulmonary oedema [Recovering/Resolving]
  - Nasal congestion [Recovering/Resolving]
  - Cardiac failure [Not Recovered/Not Resolved]
  - Multiple organ dysfunction syndrome [Fatal]
  - Respiratory distress [Recovering/Resolving]
  - Disease progression [Unknown]
